FAERS Safety Report 5124012-8 (Version None)
Quarter: 2006Q3

REPORT INFORMATION
  Report Type: 
  Country: None (occurrence: None)
  Receive Date: 20060808
  Receipt Date: 20060619
  Transmission Date: 20061208
  Serious: Yes (Disabling)
  Sender: FDA-Public Use
  Company Number: 200519311US

PATIENT
  Age: 71 Year
  Sex: Female
  Weight: 65 kg

DRUGS (9)
  1. FUROSEMIDE [Suspect]
     Indication: HYPERTENSION
     Dosage: 20 MG 3XW PO
     Route: 048
     Dates: start: 20050101, end: 20050801
  2. FUROSEMIDE [Suspect]
     Indication: HYPERTENSION
     Dosage: 20 MG 3XW PO
     Route: 048
  3. EXEMESTANE (AROMASIN) [Concomitant]
  4. AREDIA [Concomitant]
  5. LIPITOR [Concomitant]
  6. NORVASC [Concomitant]
  7. CHLOROQUINE PHOSPHATE [Concomitant]
  8. COZAAR [Concomitant]
  9. COREG [Concomitant]

REACTIONS (1)
  - DEAFNESS UNILATERAL [None]
